FAERS Safety Report 11664146 (Version 1)
Quarter: 2015Q4

REPORT INFORMATION
  Report Type: Spontaneous
  Country: None (occurrence: None)
  Receive Date: 20151026
  Receipt Date: 20151026
  Transmission Date: 20160304
  Serious: Yes (Other)
  Sender: FDA-Public Use
  Company Number: None

PATIENT
  Age: 63 Year
  Sex: Female

DRUGS (9)
  1. MULTI [Concomitant]
  2. CALCIUM [Concomitant]
     Active Substance: CALCIUM
  3. FISH OIL [Concomitant]
     Active Substance: FISH OIL
  4. VIT. B [Concomitant]
  5. VIT. D, FOLIC ACID, VIT. B - COMPLEX [Concomitant]
     Active Substance: FOLIC ACID\VITAMINS
  6. ALLERGY MEDS [Concomitant]
  7. COQ10 [Concomitant]
     Active Substance: UBIDECARENONE
  8. LOVENOX [Suspect]
     Active Substance: ENOXAPARIN SODIUM
     Indication: POSTOPERATIVE CARE
     Dosage: GIVEN INTO/UNDER THE SKIN
     Route: 058
  9. ZETIA [Concomitant]
     Active Substance: EZETIMIBE

REACTIONS (5)
  - Procedural pain [None]
  - Incision site haemorrhage [None]
  - Post procedural haematoma [None]
  - Drug dose omission [None]
  - Panic reaction [None]

NARRATIVE: CASE EVENT DATE: 20151017
